FAERS Safety Report 8770631 (Version 1)
Quarter: 2012Q4

REPORT INFORMATION
  Report Type: 
  Country: NL (occurrence: NL)
  Receive Date: 20120906
  Receipt Date: 20120906
  Transmission Date: 20130627
  Serious: Yes (Life-Threatening, Hospitalization)
  Sender: FDA-Public Use
  Company Number: NL-ROCHE-1116238

PATIENT
  Age: 39 Year
  Sex: Female
  Weight: 61 kg

DRUGS (3)
  1. XELODA [Suspect]
     Indication: BREAST CANCER METASTATIC
     Route: 048
     Dates: start: 20120222, end: 20120301
  2. XELODA [Suspect]
     Route: 048
  3. AMOXICILLINE [Suspect]
     Indication: UPPER RESPIRATORY TRACT INFECTION
     Route: 048
     Dates: start: 20120220, end: 20120301

REACTIONS (3)
  - Respiratory failure [Recovered/Resolved]
  - Toxic epidermal necrolysis [Recovered/Resolved with Sequelae]
  - Alveolitis allergic [Recovered/Resolved]
